FAERS Safety Report 9001648 (Version 1)
Quarter: 2013Q1

REPORT INFORMATION
  Report Type: Spontaneous
  Country: DE (occurrence: DE)
  Receive Date: 20130107
  Receipt Date: 20130107
  Transmission Date: 20140127
  Serious: Yes (Hospitalization)
  Sender: FDA-Public Use
  Company Number: DE-TEVA-377961GER

PATIENT
  Age: 85 Year
  Sex: Female

DRUGS (1)
  1. PREDNISONE [Suspect]
     Indication: TEMPORAL ARTERITIS
     Dosage: 10 MILLIGRAM DAILY;
     Route: 065
     Dates: start: 1998, end: 2006

REACTIONS (4)
  - Ross syndrome [Unknown]
  - Condition aggravated [Unknown]
  - Panic disorder without agoraphobia [Recovering/Resolving]
  - Drug withdrawal syndrome [Unknown]
